FAERS Safety Report 5611531-0 (Version None)
Quarter: 2008Q1

REPORT INFORMATION
  Report Type: 
  Country: None (occurrence: None)
  Receive Date: 20080201
  Receipt Date: 20080131
  Transmission Date: 20080703
  Serious: Yes (Death)
  Sender: FDA-Public Use
  Company Number: US-BOEHRINGER INGELHEIM GMBH, GERMANY-2005-BP-11247BP

PATIENT
  Sex: Male
  Weight: 97.52 kg

DRUGS (6)
  1. TIPRANAVIR / RITONAVIR CAPSULES [Suspect]
     Indication: HIV INFECTION
     Dosage: TPV 1000 MG/ RTV 400 MG
     Route: 048
     Dates: start: 20030911, end: 20050630
  2. NORTRIPTYLINE HCL [Concomitant]
     Route: 048
     Dates: start: 20041201, end: 20050630
  3. NORTRIPTYLINE HCL [Concomitant]
     Route: 048
     Dates: start: 20041206, end: 20050630
  4. LAMIVUDINE [Concomitant]
     Indication: HIV INFECTION
     Route: 048
     Dates: start: 20030913, end: 20050630
  5. STAVUDINE [Concomitant]
     Indication: HIV INFECTION
     Route: 048
     Dates: start: 20030911, end: 20050630
  6. TENOFOVIR DISOPROXIL FUMARATE [Concomitant]
     Indication: HIV INFECTION
     Route: 048
     Dates: start: 20021001, end: 20050630

REACTIONS (1)
  - HOMICIDE [None]
